FAERS Safety Report 22191383 (Version 1)
Quarter: 2023Q2

REPORT INFORMATION
  Report Type: Spontaneous
  Country: GB (occurrence: GB)
  Receive Date: 20230410
  Receipt Date: 20230410
  Transmission Date: 20230721
  Serious: Yes (Hospitalization, Other)
  Sender: FDA-Public Use
  Company Number: GB-ETHYPHARM-2023000583

PATIENT
  Sex: Female

DRUGS (1)
  1. ZOLEDRONIC ACID [Suspect]
     Active Substance: ZOLEDRONIC ACID
     Indication: Product used for unknown indication
     Dosage: 5MG/100ML; ;
     Route: 041
     Dates: start: 20230206

REACTIONS (18)
  - Autoimmune disorder [Unknown]
  - Nuchal rigidity [Unknown]
  - Mouth ulceration [Recovered/Resolved]
  - Pain in extremity [Recovering/Resolving]
  - Visual impairment [Not Recovered/Not Resolved]
  - Eyelid ptosis [Not Recovered/Not Resolved]
  - Eye pain [Unknown]
  - Facial paralysis [Unknown]
  - Joint swelling [Recovering/Resolving]
  - Malaise [Unknown]
  - Malaise [Unknown]
  - Headache [Recovered/Resolved]
  - Productive cough [Unknown]
  - Chest discomfort [Recovered/Resolved]
  - Decreased appetite [Unknown]
  - Nausea [Unknown]
  - Chills [Not Recovered/Not Resolved]
  - Pyrexia [Unknown]

NARRATIVE: CASE EVENT DATE: 20230206
